FAERS Safety Report 12145069 (Version 1)
Quarter: 2016Q1

REPORT INFORMATION
  Report Type: Spontaneous
  Country: US (occurrence: None)
  Receive Date: 20160303
  Receipt Date: 20160303
  Transmission Date: 20160526
  Serious: Yes (Hospitalization)
  Sender: FDA-Public Use
  Company Number: None

PATIENT
  Age: 62 Year
  Sex: Female
  Weight: 73.3 kg

DRUGS (1)
  1. TRIAMCINOLONE [Suspect]
     Active Substance: TRIAMCINOLONE
     Indication: PAIN
     Route: 050
     Dates: start: 20160125, end: 20160125

REACTIONS (7)
  - Suicidal ideation [None]
  - Depression [None]
  - Anxiety [None]
  - Irritability [None]
  - Impulsive behaviour [None]
  - Mania [None]
  - Agitation [None]

NARRATIVE: CASE EVENT DATE: 20160224
